FAERS Safety Report 13821189 (Version 1)
Quarter: 2017Q3

REPORT INFORMATION
  Report Type: Spontaneous
  Country: US (occurrence: US)
  Receive Date: 20170801
  Receipt Date: 20170801
  Transmission Date: 20171127
  Serious: No
  Sender: FDA-Public Use
  Company Number: US-SEBELA IRELAND LIMITED-2016SEB01449

PATIENT
  Sex: Female
  Weight: 58.96 kg

DRUGS (9)
  1. PEXEVA [Suspect]
     Active Substance: PAROXETINE MESYLATE
     Dosage: 20 MG, 1X/DAY
     Dates: start: 2013, end: 2013
  2. PEXEVA [Suspect]
     Active Substance: PAROXETINE MESYLATE
     Dosage: 10 MG, 1X/DAY
     Dates: start: 2015, end: 20160810
  3. PEXEVA [Suspect]
     Active Substance: PAROXETINE MESYLATE
     Dosage: 10 MG, EVERY 48 HOURS
     Route: 048
     Dates: start: 20160810
  4. PEXEVA [Suspect]
     Active Substance: PAROXETINE MESYLATE
     Indication: DEPRESSION
     Dosage: 40 UNK, 1X/DAY
     Dates: end: 2013
  5. BUSPIRONE [Concomitant]
     Active Substance: BUSPIRONE HYDROCHLORIDE
     Dosage: 10 MG, UP TO 3X/DAY AS NEEDED
  6. PEXEVA [Suspect]
     Active Substance: PAROXETINE MESYLATE
     Indication: DEPRESSION
     Dosage: 20 UNK, 1X/DAY
     Dates: start: 2010
  7. LAMICTAL [Concomitant]
     Active Substance: LAMOTRIGINE
  8. PEXEVA [Suspect]
     Active Substance: PAROXETINE MESYLATE
     Indication: DEPRESSION
     Dosage: 10 MG, 1X/DAY
     Route: 048
     Dates: start: 2009, end: 2010
  9. WELLBUTRIN [Suspect]
     Active Substance: BUPROPION HYDROCHLORIDE
     Dosage: UNK, 1X/DAY

REACTIONS (5)
  - Nausea [Recovered/Resolved]
  - Influenza like illness [Recovered/Resolved]
  - Nightmare [Recovered/Resolved]
  - Therapy cessation [Recovered/Resolved]
  - Off label use [Not Recovered/Not Resolved]

NARRATIVE: CASE EVENT DATE: 2013
